FAERS Safety Report 4868028-5 (Version None)
Quarter: 2005Q4

REPORT INFORMATION
  Report Type: 
  Country: None (occurrence: None)
  Receive Date: 20051229
  Receipt Date: 20051222
  Transmission Date: 20060501
  Serious: Yes (Hospitalization)
  Sender: FDA-Public Use
  Company Number: US-BRISTOL-MYERS SQUIBB COMPANY-13227996

PATIENT
  Age: 67 Year
  Sex: Male
  Weight: 70 kg

DRUGS (3)
  1. CETUXIMAB [Suspect]
     Indication: SQUAMOUS CELL CARCINOMA
     Dosage: INITIAL TX DATE: 14-NOV-05.
     Route: 042
     Dates: start: 20051213, end: 20051213
  2. CISPLATIN [Suspect]
     Indication: SQUAMOUS CELL CARCINOMA
     Dosage: INITIAL TX DATE: 14-NOV-05. PT REC'D 5 COURSES.  TOTAL DOSE ADM THIS COURSE: 57MG (NO DATE REPORTED)
     Route: 042
  3. RADIATION THERAPY [Suspect]
     Indication: SQUAMOUS CELL CARCINOMA
     Dosage: INITIAL TX DATE: 14-NOV-05. TOTAL DOSE TO DATE:38GY (# OF FRACTIONS:19/ELAPSED DAYS:5)
     Dates: start: 20051216, end: 20051216

REACTIONS (5)
  - ANOREXIA [None]
  - DEHYDRATION [None]
  - HYPOMAGNESAEMIA [None]
  - RASH [None]
  - STOMATITIS [None]
